FAERS Safety Report 25873174 (Version 1)
Quarter: 2025Q4

REPORT INFORMATION
  Report Type: Spontaneous
  Country: EU (occurrence: EU)
  Receive Date: 20251002
  Receipt Date: 20251002
  Transmission Date: 20260117
  Serious: Yes (Death, Other)
  Sender: BRACCO
  Company Number: None

PATIENT
  Age: 77 Year
  Sex: Male

DRUGS (1)
  1. IOMERON [Suspect]
     Active Substance: IOMEPROL
     Indication: Scan with contrast
     Dosage: 114 ML, SINGLE
     Route: 042
     Dates: start: 20231120, end: 20231120

REACTIONS (5)
  - Cardiac arrest [Fatal]
  - Anaphylactic reaction [Fatal]
  - Agonal respiration [Unknown]
  - Loss of consciousness [Not Recovered/Not Resolved]
  - Nausea [Unknown]

NARRATIVE: CASE EVENT DATE: 20231120
